FAERS Safety Report 16997838 (Version 1)
Quarter: 2019Q4

REPORT INFORMATION
  Report Type: Report from Study
  Country: BR (occurrence: BR)
  Receive Date: 20191105
  Receipt Date: 20191105
  Transmission Date: 20200122
  Serious: Yes (Hospitalization)
  Sender: FDA-Public Use
  Company Number: PHHY2019BR149557

PATIENT
  Age: 46 Year
  Sex: Female
  Weight: 71 kg

DRUGS (3)
  1. GILENYA [Suspect]
     Active Substance: FINGOLIMOD HYDROCHLORIDE
     Indication: MULTIPLE SCLEROSIS
     Dosage: 1 DF, QD
     Route: 048
     Dates: start: 20190618
  2. GILENYA [Suspect]
     Active Substance: FINGOLIMOD HYDROCHLORIDE
     Dosage: 1 DF, QD
     Route: 048
  3. GILENYA [Suspect]
     Active Substance: FINGOLIMOD HYDROCHLORIDE
     Dosage: 1 DF, QD
     Route: 048
     Dates: end: 201909

REACTIONS (15)
  - Malaise [Not Recovered/Not Resolved]
  - Pain [Not Recovered/Not Resolved]
  - Crying [Recovered/Resolved]
  - Infection [Unknown]
  - Vomiting [Unknown]
  - Gait disturbance [Not Recovered/Not Resolved]
  - Agitation [Recovered/Resolved]
  - Multiple sclerosis relapse [Not Recovered/Not Resolved]
  - Eye contusion [Unknown]
  - Visual impairment [Unknown]
  - Limb discomfort [Recovering/Resolving]
  - Tremor [Not Recovered/Not Resolved]
  - Muscle spasms [Unknown]
  - Eye disorder [Unknown]
  - Fatigue [Not Recovered/Not Resolved]

NARRATIVE: CASE EVENT DATE: 20190618
